FAERS Safety Report 12272904 (Version 1)
Quarter: 2016Q2

REPORT INFORMATION
  Report Type: Spontaneous
  Country: US (occurrence: US)
  Receive Date: 20160415
  Receipt Date: 20160415
  Transmission Date: 20160815
  Serious: Yes (Life-Threatening, Hospitalization)
  Sender: FDA-Public Use
  Company Number: US-UNICHEM LABORATORIES LIMITED-UCM201604-000057

PATIENT
  Age: 63 Year
  Sex: Female

DRUGS (4)
  1. SEROTONIN [Concomitant]
     Active Substance: SEROTONIN
     Indication: GENERALISED TONIC-CLONIC SEIZURE
  2. DULOXETINE. [Suspect]
     Active Substance: DULOXETINE
     Indication: GENERALISED TONIC-CLONIC SEIZURE
  3. HYDROCHLOROTHIAZIDE. [Suspect]
     Active Substance: HYDROCHLOROTHIAZIDE
     Indication: HYPERTENSION
  4. TRIAMTERENE. [Concomitant]
     Active Substance: TRIAMTERENE
     Indication: HYPERTENSION

REACTIONS (1)
  - Hyponatraemic encephalopathy [Recovered/Resolved]
